FAERS Safety Report 4900437-8 (Version None)
Quarter: 2006Q1

REPORT INFORMATION
  Report Type: 
  Country: None (occurrence: None)
  Receive Date: 20060203
  Receipt Date: 20060127
  Transmission Date: 20060701
  Serious: Yes (Life-Threatening)
  Sender: FDA-Public Use
  Company Number: FR-SANOFI-SYNTHELABO-A02200600273

PATIENT
  Age: 56 Year
  Sex: Male

DRUGS (2)
  1. XATRAL [Suspect]
     Indication: MICTURITION DISORDER
     Route: 048
     Dates: start: 20051228, end: 20060112
  2. XATRAL [Suspect]
     Indication: MICTURITION URGENCY
     Route: 048
     Dates: start: 20051228, end: 20060112

REACTIONS (10)
  - ANAPHYLACTOID REACTION [None]
  - ANGIONEUROTIC OEDEMA [None]
  - DYSPNOEA [None]
  - FACE OEDEMA [None]
  - HYPOTENSION [None]
  - MALAISE [None]
  - OEDEMA [None]
  - PHARYNGEAL OEDEMA [None]
  - PULMONARY EMBOLISM [None]
  - SOMNOLENCE [None]
